FAERS Safety Report 7425519-0 (Version None)
Quarter: 2011Q2

REPORT INFORMATION
  Report Type: 
  Country: None (occurrence: None)
  Receive Date: 20110418
  Receipt Date: 20110418
  Transmission Date: 20111010
  Serious: Yes (Other)
  Sender: FDA-Public Use
  Company Number: None

PATIENT
  Age: 46 Year
  Sex: Male
  Weight: 81.1939 kg

DRUGS (2)
  1. VANCOMYCIN [Suspect]
     Indication: STAPHYLOCOCCAL INFECTION
     Dosage: 1200MG Q8H IV
     Route: 042
     Dates: start: 20101220, end: 20110115
  2. VANCOMYCIN [Suspect]
     Indication: INFECTION
     Dosage: 1200MG Q8H IV
     Route: 042
     Dates: start: 20101220, end: 20110115

REACTIONS (4)
  - PAIN IN EXTREMITY [None]
  - ERYTHEMA [None]
  - DISCOMFORT [None]
  - NEUTROPENIA [None]
